FAERS Safety Report 8854840 (Version 3)
Quarter: 2013Q1

REPORT INFORMATION
  Report Type: Spontaneous
  Country: BR (occurrence: BR)
  Receive Date: 20121023
  Receipt Date: 20130329
  Transmission Date: 20140127
  Serious: Yes (Other)
  Sender: FDA-Public Use
  Company Number: PHHY2012BR094412

PATIENT
  Age: 31 Year
  Sex: Male

DRUGS (1)
  1. TEGRETOL [Suspect]
     Indication: CONVULSION
     Dosage: 1.5 DF (HALF TABLET IN THE MORNING AND 1 TABLET AT NIGHT), DAILY
     Route: 048
     Dates: end: 201206

REACTIONS (4)
  - Fall [Not Recovered/Not Resolved]
  - Face injury [Recovered/Resolved]
  - Convulsion [Not Recovered/Not Resolved]
  - Drug ineffective [Not Recovered/Not Resolved]
